FAERS Safety Report 8955852 (Version 2)
Quarter: 2012Q4

REPORT INFORMATION
  Report Type: 
  Country: US (occurrence: US)
  Receive Date: 20121210
  Receipt Date: 20121218
  Transmission Date: 20130627
  Serious: Yes (Other)
  Sender: FDA-Public Use
  Company Number: US-ACTELION-A-US2012-74593

PATIENT
  Age: 53 Year
  Sex: Male

DRUGS (1)
  1. VELETRI [Suspect]
     Indication: PULMONARY ARTERIAL HYPERTENSION
     Dosage: 15 ng/kg, per min
     Route: 042
     Dates: start: 20121109

REACTIONS (4)
  - Compression fracture [Not Recovered/Not Resolved]
  - Fall [Unknown]
  - Dyspnoea [Unknown]
  - Dyspnoea exertional [Unknown]
